FAERS Safety Report 5489880-9 (Version None)
Quarter: 2007Q4

REPORT INFORMATION
  Report Type: 
  Country: None (occurrence: None)
  Receive Date: 20071018
  Receipt Date: 20071011
  Transmission Date: 20080405
  Serious: Yes (Other)
  Sender: FDA-Public Use
  Company Number: US-JNJFOC-20071003539

PATIENT
  Sex: Female
  Weight: 10.43 kg

DRUGS (2)
  1. TYLENOL [Suspect]
     Indication: COUGH
  2. TYLENOL [Suspect]
     Indication: RHINORRHOEA

REACTIONS (5)
  - FEBRILE CONVULSION [None]
  - OFF LABEL USE [None]
  - OTITIS MEDIA [None]
  - PHARYNGOLARYNGEAL PAIN [None]
  - VIRAL INFECTION [None]
